FAERS Safety Report 7028844-0 (Version None)
Quarter: 2010Q4

REPORT INFORMATION
  Report Type: 
  Country: None (occurrence: None)
  Receive Date: 20101004
  Receipt Date: 20101004
  Transmission Date: 20110411
  Serious: Yes (Hospitalization)
  Sender: FDA-Public Use
  Company Number: None

PATIENT
  Sex: Female
  Weight: 77 kg

DRUGS (1)
  1. METOPROLOL TARTRATE [Suspect]
     Indication: SUPRAVENTRICULAR TACHYCARDIA
     Dosage: 12.5MG 1XDAY PO
     Route: 048
     Dates: start: 20050101, end: 20101002

REACTIONS (2)
  - PALPITATIONS [None]
  - PRODUCT SUBSTITUTION ISSUE [None]
